FAERS Safety Report 25842788 (Version 1)
Quarter: 2025Q3

REPORT INFORMATION
  Report Type: Spontaneous
  Country: EU (occurrence: EU)
  Receive Date: 20250924
  Receipt Date: 20250924
  Transmission Date: 20251021
  Serious: Yes (Hospitalization, Other)
  Sender: BOEHRINGER INGELHEIM
  Company Number: EU-BoehringerIngelheim-2025-BI-095998

PATIENT
  Age: 79 Year
  Sex: Male

DRUGS (2)
  1. EMPAGLIFLOZIN [Suspect]
     Active Substance: EMPAGLIFLOZIN
     Indication: Type 2 diabetes mellitus
  2. INSULIN NOS [Concomitant]
     Active Substance: INSULIN NOS
     Indication: Type 2 diabetes mellitus

REACTIONS (11)
  - Euglycaemic diabetic ketoacidosis [Recovered/Resolved]
  - Acute coronary syndrome [Unknown]
  - Cardiac procedure complication [Unknown]
  - Bundle branch block right [Unknown]
  - Myocardial ischaemia [Unknown]
  - Cardiac arrest [Recovered/Resolved]
  - Ejection fraction decreased [Recovering/Resolving]
  - Arterial stenosis [Recovering/Resolving]
  - Infarction [Recovering/Resolving]
  - Cardiogenic shock [Recovered/Resolved]
  - Atrial fibrillation [Not Recovered/Not Resolved]
